FAERS Safety Report 15681239 (Version 5)
Quarter: 2019Q2

REPORT INFORMATION
  Report Type: Spontaneous
  Country: CZ (occurrence: CZ)
  Receive Date: 20181203
  Receipt Date: 20190423
  Transmission Date: 20190711
  Serious: Yes (Life-Threatening, Hospitalization, Other)
  Sender: FDA-Public Use
  Company Number: CZ-ABBVIE-18S-217-2576476-00

PATIENT
  Age: 68 Year
  Sex: Male

DRUGS (6)
  1. NOVALGIN (METAMIZOLE SODIUM) [Suspect]
     Active Substance: METAMIZOLE SODIUM
     Route: 042
     Dates: start: 20181127, end: 20181127
  2. SODIUM CHLORIDE. [Suspect]
     Active Substance: SODIUM CHLORIDE
     Indication: ARTHROSCOPY
     Dosage: 250ML
     Route: 042
     Dates: start: 20181127, end: 20181127
  3. PROPOFOL. [Suspect]
     Active Substance: PROPOFOL
     Indication: ARTHROSCOPY
     Dosage: DOSAGE FORM: EMULSION.
     Route: 042
     Dates: start: 20181127, end: 20181127
  4. SUFENTA [Suspect]
     Active Substance: SUFENTANIL CITRATE
     Indication: ARTHROSCOPY
     Dosage: STRENGTH 10 MCG PER 2 ML
     Route: 042
     Dates: start: 20181127, end: 20181127
  5. NOVALGIN (METAMIZOLE SODIUM) [Suspect]
     Active Substance: METAMIZOLE SODIUM
     Indication: ARTHROSCOPY
     Route: 042
     Dates: start: 20181127, end: 20181127
  6. SEVORANE [Suspect]
     Active Substance: SEVOFLURANE
     Indication: ARTHROSCOPY
     Dosage: DOSAGE FORM: SOLUTION
     Route: 055
     Dates: start: 20181127, end: 20181127

REACTIONS (12)
  - Septic shock [Recovering/Resolving]
  - Diarrhoea [Recovering/Resolving]
  - Tachycardia [Recovering/Resolving]
  - Nausea [Recovering/Resolving]
  - Speech disorder [Recovering/Resolving]
  - Hepatorenal failure [Recovering/Resolving]
  - Device issue [Unknown]
  - Oxygen saturation decreased [Recovering/Resolving]
  - Confusional state [Recovering/Resolving]
  - Hypotension [Recovering/Resolving]
  - Suspected product contamination [Unknown]
  - Dysarthria [Recovering/Resolving]

NARRATIVE: CASE EVENT DATE: 20181128
